FAERS Safety Report 8902221 (Version 2)
Quarter: 2012Q4

REPORT INFORMATION
  Report Type: 
  Country: JP (occurrence: JP)
  Receive Date: 20121112
  Receipt Date: 20121128
  Transmission Date: 20130627
  Serious: Yes (Other)
  Sender: FDA-Public Use
  Company Number: JP-ASTRAZENECA-2012SE84254

PATIENT
  Age: 76 Year
  Sex: Female

DRUGS (5)
  1. CRESTOR [Suspect]
     Indication: HYPERLIPIDAEMIA
     Route: 048
     Dates: start: 20120901
  2. ADALAT L [Suspect]
     Route: 048
     Dates: start: 1997
  3. ZADITEN [Suspect]
     Route: 048
     Dates: start: 1997
  4. THEOLONG [Suspect]
     Route: 048
     Dates: start: 1997
  5. ACTONEL [Suspect]
     Route: 048
     Dates: start: 2011

REACTIONS (9)
  - Angina unstable [Unknown]
  - Hepatic function abnormal [Recovered/Resolved]
  - Palpitations [Unknown]
  - Thirst [Unknown]
  - Cold sweat [Unknown]
  - Vomiting [Unknown]
  - Asthenia [Unknown]
  - Nausea [Unknown]
  - Dizziness [Unknown]
